FAERS Safety Report 26127286 (Version 1)
Quarter: 2025Q4

REPORT INFORMATION
  Report Type: Spontaneous
  Country: TR (occurrence: TR)
  Receive Date: 20251205
  Receipt Date: 20251205
  Transmission Date: 20260117
  Serious: Yes (Hospitalization, Other)
  Sender: NOVO NORDISK
  Company Number: TR-NOVOPROD-1574755

PATIENT
  Age: 740 Month
  Sex: Female
  Weight: 67.5 kg

DRUGS (10)
  1. LYRICA [Concomitant]
     Active Substance: PREGABALIN
     Indication: Product used for unknown indication
     Dosage: UNK
  2. DULOXETINE [Concomitant]
     Active Substance: DULOXETINE
     Indication: Product used for unknown indication
     Dosage: 60 MG, QD
  3. BUTYLSCOPOLAMINE BROMIDE\MEDAZEPAM [Concomitant]
     Active Substance: BUTYLSCOPOLAMINE BROMIDE\MEDAZEPAM
     Indication: Product used for unknown indication
     Dosage: UNK
  4. INDAPAMIDE [Concomitant]
     Active Substance: INDAPAMIDE
     Indication: Product used for unknown indication
     Dosage: UNK
  5. ALATAB [Concomitant]
     Indication: Product used for unknown indication
     Dosage: UNK
  6. CARDURA XL [Concomitant]
     Active Substance: DOXAZOSIN MESYLATE
     Indication: Product used for unknown indication
     Dosage: UNK
  7. NOVORAPID [Suspect]
     Active Substance: INSULIN ASPART
     Indication: Diabetes mellitus
     Dosage: 10 IU, TID
  8. LANTUS [Concomitant]
     Active Substance: INSULIN GLARGINE
     Indication: Product used for unknown indication
     Dosage: 120 IU, QD(30?40?50 UNITS)
  9. METFORMIN HYDROCHLORIDE\VILDAGLIPTIN [Concomitant]
     Active Substance: METFORMIN HYDROCHLORIDE\VILDAGLIPTIN
     Indication: Product used for unknown indication
     Dosage: UNK
  10. SULFASALAZINE [Concomitant]
     Active Substance: SULFASALAZINE
     Indication: Product used for unknown indication
     Dosage: UNK

REACTIONS (11)
  - Aortic aneurysm [Unknown]
  - Breast cancer [Unknown]
  - Cholecystectomy [Unknown]
  - Surgery [Unknown]
  - Diabetes mellitus [Unknown]
  - Hypertension [Unknown]
  - Rheumatic disorder [Unknown]
  - Condition aggravated [Unknown]
  - Anaemia [Unknown]
  - Visual impairment [Unknown]
  - Blood glucose decreased [Unknown]
